FAERS Safety Report 23431289 (Version 1)
Quarter: 2024Q1

REPORT INFORMATION
  Report Type: Spontaneous
  Country: CN (occurrence: CN)
  Receive Date: 20240123
  Receipt Date: 20240123
  Transmission Date: 20240410
  Serious: Yes (Other)
  Sender: FDA-Public Use
  Company Number: None

PATIENT
  Age: 67 Year
  Sex: Female
  Weight: 60 kg

DRUGS (4)
  1. CYCLOPHOSPHAMIDE [Suspect]
     Active Substance: CYCLOPHOSPHAMIDE
     Indication: Breast cancer female
     Dosage: 0.8 G, ONE TIME IN ONE DAY, D1, DILUTED WITH 50 ML OF 0.9% SODIUM CHLORIDE
     Route: 041
     Dates: start: 20231219, end: 20231219
  2. SODIUM CHLORIDE [Suspect]
     Active Substance: SODIUM CHLORIDE
     Indication: Vehicle solution use
     Dosage: (0.9%) 50 ML, ONE TIME IN ONE DAY, D1, USED TO DILUTE 0.8 G OF CYCLOPHOSPHAMIDE, DOSAGE FORM: INJECT
     Route: 041
     Dates: start: 20231219, end: 20231219
  3. DEXTROSE [Suspect]
     Active Substance: DEXTROSE\DEXTROSE MONOHYDRATE
     Indication: Vehicle solution use
     Dosage: (5%) 750 ML, ONE TIME IN ONE DAY, D1, USED TO DILUTE 48 MG OF DOXORUBICIN LIPOSOME, DOSAGE FORM: INJ
     Route: 041
     Dates: start: 20231219, end: 20231219
  4. DOXORUBICIN HYDROCHLORIDE [Suspect]
     Active Substance: DOXORUBICIN HYDROCHLORIDE
     Indication: Breast cancer female
     Dosage: 48 MG, D1, ONE TIME IN ONE DAY, DILUTED WITH 750 ML OF 5% GLUCOSE, (SELF PROVIDED BY PATIENTS)
     Route: 041
     Dates: start: 20231219, end: 20231219

REACTIONS (1)
  - Myelosuppression [Recovered/Resolved]

NARRATIVE: CASE EVENT DATE: 20240108
